FAERS Safety Report 15969456 (Version 5)
Quarter: 2020Q1

REPORT INFORMATION
  Report Type: Report from Study
  Country: US (occurrence: US)
  Receive Date: 20190215
  Receipt Date: 20200224
  Transmission Date: 20200409
  Serious: Yes (Hospitalization, Other)
  Sender: FDA-Public Use
  Company Number: US-ACTELION-A-NJ2019-186342

PATIENT
  Sex: Female
  Weight: 52.61 kg

DRUGS (2)
  1. OPSUMIT [Suspect]
     Active Substance: MACITENTAN
     Indication: PULMONARY HYPERTENSION
     Dosage: 10 MG, QD
     Route: 048
  2. ADCIRCA [Concomitant]
     Active Substance: TADALAFIL

REACTIONS (32)
  - Pneumonia aspiration [Unknown]
  - Vision blurred [Unknown]
  - Condition aggravated [Unknown]
  - Hot flush [Unknown]
  - Syncope [Unknown]
  - Pulmonary mass [Unknown]
  - Dizziness [Unknown]
  - Dyspnoea exertional [Unknown]
  - Hypoaesthesia [Unknown]
  - Urinary tract infection [Unknown]
  - Dyspnoea [Not Recovered/Not Resolved]
  - Fall [Unknown]
  - Asthenia [Unknown]
  - Dry eye [Unknown]
  - Bladder disorder [Unknown]
  - Blood glucose decreased [Unknown]
  - Corneal abrasion [Unknown]
  - Chest pain [Unknown]
  - Visual impairment [Unknown]
  - Palpitations [Unknown]
  - Decreased appetite [Unknown]
  - Cough [Unknown]
  - Nasal congestion [Unknown]
  - Bone contusion [Unknown]
  - Dyspnoea at rest [Unknown]
  - Oedema [Unknown]
  - Fatigue [Unknown]
  - Lung disorder [Unknown]
  - Head injury [Unknown]
  - Weight decreased [Unknown]
  - Exercise tolerance decreased [Unknown]
  - Pulmonary function test decreased [Unknown]
